FAERS Safety Report 9329625 (Version 1)
Quarter: 2013Q2

REPORT INFORMATION
  Report Type: Spontaneous
  Country: US (occurrence: US)
  Receive Date: 20130604
  Receipt Date: 20130604
  Transmission Date: 20140414
  Serious: No
  Sender: FDA-Public Use
  Company Number: US-SANOFI-AVENTIS-2013SA000520

PATIENT
  Sex: Male

DRUGS (6)
  1. LANTUS SOLOSTAR [Suspect]
     Indication: TYPE 2 DIABETES MELLITUS
     Dosage: DOSE:25 UNIT(S)
     Route: 051
  2. LANTUS SOLOSTAR [Suspect]
     Indication: TYPE 2 DIABETES MELLITUS
     Dosage: DOSE:20 UNIT(S)
     Route: 051
  3. SOLOSTAR [Suspect]
     Dates: start: 20120102
  4. GLIMEPIRIDE [Suspect]
  5. NOVOLOG [Suspect]
     Dosage: DOSE:15 UNIT(S)
  6. NOVOLOG [Suspect]
     Dosage: DOSE:9 UNIT(S)

REACTIONS (7)
  - Blood glucose increased [Recovering/Resolving]
  - Glycosylated haemoglobin increased [Recovering/Resolving]
  - Somnolence [Unknown]
  - Lethargy [Unknown]
  - Somnolence [Unknown]
  - Abdominal discomfort [Unknown]
  - Sinus disorder [Unknown]
